FAERS Safety Report 17428779 (Version 2)
Quarter: 2020Q1

REPORT INFORMATION
  Report Type: Spontaneous
  Country: US (occurrence: US)
  Receive Date: 20200218
  Receipt Date: 20200311
  Transmission Date: 20200409
  Serious: Yes (Other)
  Sender: FDA-Public Use
  Company Number: US-PFIZER INC-2019441620

PATIENT
  Age: 78 Year
  Sex: Female

DRUGS (2)
  1. SUTENT [Suspect]
     Active Substance: SUNITINIB MALATE
     Dosage: 25 MG, CYCLIC ( 2 WEEKS ON THEN 2 WEEKS OFF)
  2. SUTENT [Suspect]
     Active Substance: SUNITINIB MALATE
     Indication: RENAL CANCER
     Dosage: 25 MG, UNK

REACTIONS (6)
  - Product dose omission [Unknown]
  - White blood cell count decreased [Unknown]
  - Cerebrovascular accident [Unknown]
  - Neoplasm progression [Unknown]
  - Paralysis [Unknown]
  - Dysphagia [Unknown]
